FAERS Safety Report 10576095 (Version 1)
Quarter: 2014Q4

REPORT INFORMATION
  Report Type: Spontaneous
  Country: US (occurrence: None)
  Receive Date: 20141110
  Receipt Date: 20141110
  Transmission Date: 20150529
  Serious: Yes (Other)
  Sender: FDA-Public Use
  Company Number: None

PATIENT
  Age: 49 Year
  Sex: Female
  Weight: 94.35 kg

DRUGS (1)
  1. HERCEPTIN [Suspect]
     Active Substance: TRASTUZUMAB
     Indication: BREAST CANCER
     Dosage: 2MG/KG, OVER 30 MINUTES.HERCEPTIN EVERY 3 WEEKS
     Route: 042

REACTIONS (2)
  - Rash pruritic [None]
  - Dyspnoea [None]

NARRATIVE: CASE EVENT DATE: 20141101
